FAERS Safety Report 9159285 (Version 1)
Quarter: 2013Q1

REPORT INFORMATION
  Report Type: Spontaneous
  Country: ES (occurrence: None)
  Receive Date: 20130213
  Receipt Date: 20130213
  Transmission Date: 20140127
  Serious: Yes (Hospitalization)
  Sender: FDA-Public Use
  Company Number: 2013ST000039

PATIENT
  Sex: 0

DRUGS (4)
  1. OMEPRAZOLE (OMEPRAZOLE) [Suspect]
  2. TACROLIMUS (TACROLIMUS) [Suspect]
     Indication: IMMUNOSUPPRESSION
     Route: 048
  3. MYCOPHENOLATE [Concomitant]
  4. CORTICOSTEROIDS [Concomitant]

REACTIONS (6)
  - Drug interaction [None]
  - Complications of transplanted kidney [None]
  - Renal tubular necrosis [None]
  - Urinary retention [None]
  - Seroma [None]
  - Dialysis [None]
